FAERS Safety Report 24019974 (Version 1)
Quarter: 2024Q2

REPORT INFORMATION
  Report Type: Spontaneous
  Country: CN (occurrence: CN)
  Receive Date: 20240627
  Receipt Date: 20240627
  Transmission Date: 20240715
  Serious: Yes (Hospitalization)
  Sender: FDA-Public Use
  Company Number: CN-NOVOPROD-1215946

PATIENT
  Age: 65 Year
  Sex: Male
  Weight: 46.5 kg

DRUGS (3)
  1. NOVORAPID [Suspect]
     Active Substance: INSULIN ASPART
     Dosage: 22 IU, QD (6 U IN THE MORNING, 8 U AT NOON, 8 U IN THE EVENING)
     Route: 058
     Dates: start: 20240504
  2. NOVORAPID [Suspect]
     Active Substance: INSULIN ASPART
     Indication: Type 2 diabetes mellitus
     Dosage: 40 IU, QD (10 U IN THE MORNING, 10 U AT NOON AND 20 U IN THE EVENING)
     Route: 058
     Dates: start: 20240427, end: 20240502
  3. INSULIN GLARGINE [Concomitant]
     Active Substance: INSULIN GLARGINE
     Indication: Type 2 diabetes mellitus
     Dosage: 10 IU, QD (BEFORE SLEEP)
     Dates: start: 20240427

REACTIONS (4)
  - Mitral valve prolapse [Unknown]
  - Mitral valve incompetence [Unknown]
  - Pyrexia [Recovered/Resolved]
  - Temperature intolerance [Recovered/Resolved]

NARRATIVE: CASE EVENT DATE: 20240427
